FAERS Safety Report 5284005-7 (Version None)
Quarter: 2007Q1

REPORT INFORMATION
  Report Type: 
  Country: None (occurrence: None)
  Receive Date: 20070327
  Receipt Date: 20070312
  Transmission Date: 20070707
  Serious: Yes (Life-Threatening, Hospitalization)
  Sender: FDA-Public Use
  Company Number: TRP_0878_2006

PATIENT
  Age: 53 Year
  Sex: Female
  Weight: 63.5036 kg

DRUGS (12)
  1. RIBASPHERE [Suspect]
     Indication: HEPATITIS C
     Dosage: 1200 MG QDAY PO
     Route: 048
     Dates: start: 20060626, end: 20060905
  2. PEGASYS [Suspect]
     Indication: HEPATITIS C
     Dosage: 180 MCG QWK SC
     Route: 058
     Dates: start: 20060626, end: 20060101
  3. RIBASPHERE [Suspect]
     Indication: HEPATITIS C
     Dosage: 600 MG QDAY PO
     Route: 048
     Dates: start: 20060906, end: 20060911
  4. RIBASPHERE [Suspect]
     Indication: HEPATITIS C
     Dosage: 300 MG QDAY PO
     Route: 048
     Dates: start: 20061004, end: 20061019
  5. RIBASPHERE [Suspect]
     Indication: HEPATITIS C
     Dosage: 1000 MG QDAY PO
     Route: 048
     Dates: start: 20061019
  6. PEGASYS [Suspect]
     Indication: HEPATITIS C
     Dosage: 180 MCG QWK SC
     Route: 058
     Dates: start: 20061201
  7. PEGASYS [Suspect]
     Indication: HEPATITIS C
     Dosage: 135 MCG QWK SC
     Route: 058
     Dates: start: 20070101
  8. PROZAC [Concomitant]
  9. MIRTAZAPINE [Concomitant]
  10. QUETIAPINE FUMARATE [Concomitant]
  11. QUETIAPINE FUMARATE [Concomitant]
  12. RITALIN [Concomitant]

REACTIONS (23)
  - ANOREXIA [None]
  - ASTHENIA [None]
  - BLOOD GLUCOSE INCREASED [None]
  - CONSTIPATION [None]
  - COUGH [None]
  - DEPRESSION [None]
  - DIABETIC MICROANGIOPATHY [None]
  - DIZZINESS [None]
  - DRY MOUTH [None]
  - DRY SKIN [None]
  - DYSPNOEA [None]
  - FATIGUE [None]
  - GASTROOESOPHAGEAL REFLUX DISEASE [None]
  - HAEMOLYTIC ANAEMIA [None]
  - LYMPHADENOPATHY [None]
  - MEAN CELL HAEMOGLOBIN INCREASED [None]
  - MEAN CELL VOLUME INCREASED [None]
  - NUCLEAR MAGNETIC RESONANCE IMAGING BRAIN ABNORMAL [None]
  - PAROTITIS [None]
  - PLATELET COUNT INCREASED [None]
  - PYREXIA [None]
  - SIALOADENITIS [None]
  - SUICIDAL IDEATION [None]
